FAERS Safety Report 8995818 (Version 2)
Quarter: 2013Q1

REPORT INFORMATION
  Report Type: Spontaneous
  Country: BR (occurrence: BR)
  Receive Date: 20130103
  Receipt Date: 20130313
  Transmission Date: 20140127
  Serious: Yes (Other)
  Sender: FDA-Public Use
  Company Number: PHHY2012BR121217

PATIENT
  Sex: Female

DRUGS (7)
  1. FORASEQ [Suspect]
     Indication: COUGH
     Dosage: UNK
  2. DIOVAN HCT [Suspect]
     Dosage: UNK UKN, UNK
  3. DIOVAN AMLO FIX [Suspect]
     Dosage: UNK UKN, UNK
  4. VALDOXAN [Concomitant]
     Indication: DEPRESSION
     Dosage: 25 MG, UNK
     Route: 048
  5. LORAZEPAM [Concomitant]
     Indication: SLEEP DISORDER
     Dosage: 2 MG, UNK
     Route: 048
  6. CARDIZEM [Concomitant]
     Indication: ARRHYTHMIA
     Dosage: 90 MG, UNK
  7. OMEPRAZOLE [Concomitant]
     Indication: DYSPEPSIA
     Dosage: 20 MG, UNK
     Route: 048

REACTIONS (1)
  - General physical health deterioration [Not Recovered/Not Resolved]
